FAERS Safety Report 7203795-7 (Version None)
Quarter: 2010Q4

REPORT INFORMATION
  Report Type: 
  Country: None (occurrence: None)
  Receive Date: 20101230
  Receipt Date: 20101224
  Transmission Date: 20110411
  Serious: Yes (Other)
  Sender: FDA-Public Use
  Company Number: PHHY2010JP60373

PATIENT
  Sex: Male
  Weight: 104 kg

DRUGS (5)
  1. CO-DIOVAN [Suspect]
     Indication: HYPERTENSION
     Dosage: 1 DF DAILY
     Route: 048
     Dates: start: 20091116
  2. NORVASC [Concomitant]
     Dosage: 75 MG, UNK
     Route: 048
     Dates: start: 20091027
  3. ARTIST [Concomitant]
     Dosage: 10 MG, UNK
     Route: 048
     Dates: start: 20091214
  4. FLUVASTATIN [Concomitant]
     Dosage: 20 MG, UNK
     Route: 048
     Dates: start: 20100313
  5. MIGLITOL [Concomitant]
     Dosage: 150 MG, UNK
     Route: 048
     Dates: start: 20100827

REACTIONS (3)
  - BLOOD PRESSURE INCREASED [None]
  - DIABETES MELLITUS [None]
  - HYPERCHOLESTEROLAEMIA [None]
